FAERS Safety Report 6382966-6 (Version None)
Quarter: 2009Q3

REPORT INFORMATION
  Report Type: 
  Country: None (occurrence: None)
  Receive Date: 20090928
  Receipt Date: 20090928
  Transmission Date: 20100115
  Serious: Yes (Other)
  Sender: FDA-Public Use
  Company Number: None

PATIENT
  Age: 25 Year
  Sex: Male
  Weight: 92.9874 kg

DRUGS (1)
  1. PEPCIS AC CHEABLE TABLETS FAMOTIDINE 20 MG [Suspect]
     Indication: DYSPEPSIA
     Dosage: 1 TABLET 1X EVERY 12 HOURS PO
     Route: 048
     Dates: start: 20090924, end: 20090924

REACTIONS (4)
  - CHEST DISCOMFORT [None]
  - HEADACHE [None]
  - PAIN [None]
  - VISUAL IMPAIRMENT [None]
